FAERS Safety Report 13580898 (Version 1)
Quarter: 2017Q2

REPORT INFORMATION
  Report Type: Spontaneous
  Country: US (occurrence: US)
  Receive Date: 20170525
  Receipt Date: 20170525
  Transmission Date: 20170830
  Serious: No
  Sender: FDA-Public Use
  Company Number: None

PATIENT
  Age: 52 Year
  Sex: Female
  Weight: 138 kg

DRUGS (1)
  1. DOCETAXEL, 195MG [Suspect]
     Active Substance: DOCETAXEL
     Indication: BREAST CANCER
     Dates: start: 20170407, end: 20170427

REACTIONS (1)
  - Myositis [None]

NARRATIVE: CASE EVENT DATE: 20170524
